FAERS Safety Report 9685944 (Version 2)
Quarter: 2013Q4

REPORT INFORMATION
  Report Type: Report from Study
  Country: MX (occurrence: MX)
  Receive Date: 20131113
  Receipt Date: 20131115
  Transmission Date: 20140711
  Serious: Yes (Other)
  Sender: FDA-Public Use
  Company Number: MX-SANOFI-AVENTIS-2013SA092733

PATIENT
  Age: 36 Year
  Sex: Female

DRUGS (3)
  1. AUBAGIO [Suspect]
     Indication: PRODUCT USED FOR UNKNOWN INDICATION
     Route: 048
     Dates: start: 20121201, end: 20130911
  2. COLESTYRAMINE [Concomitant]
     Indication: DRUG DETOXIFICATION
     Route: 065
     Dates: start: 20130917, end: 20131008
  3. ISOTRETINOIN [Concomitant]
     Indication: ACNE
     Route: 048
     Dates: start: 201307, end: 20130907

REACTIONS (2)
  - Abortion spontaneous [Unknown]
  - Exposure during pregnancy [Unknown]
